FAERS Safety Report 13430014 (Version 1)
Quarter: 2017Q2

REPORT INFORMATION
  Report Type: Spontaneous
  Country: US (occurrence: US)
  Receive Date: 20170411
  Receipt Date: 20170411
  Transmission Date: 20170830
  Serious: Yes (Disabling, Other)
  Sender: FDA-Public Use
  Company Number: None

PATIENT
  Age: 30 Year
  Sex: Female
  Weight: 62.1 kg

DRUGS (14)
  1. ARCTOSTAHYLOS UVA-URSI [Concomitant]
  2. NAUSEASE GINGER [Concomitant]
  3. TINCTURE [Concomitant]
  4. RIBOFLAVIN (VITAMIN B2) [Concomitant]
  5. VITAMIN D3 [Concomitant]
     Active Substance: CHOLECALCIFEROL
  6. JUGLANS NIGRA [Concomitant]
  7. LICORICE ROOT [Concomitant]
     Active Substance: LICORICE
  8. GLYCYRRHIZA GLABRA [Concomitant]
     Active Substance: GLYCYRRHIZA GLABRA
  9. ZITHROMAX [Suspect]
     Active Substance: AZITHROMYCIN DIHYDRATE
     Indication: PHARYNGITIS STREPTOCOCCAL
     Dosage: 5 TABLET(S); PACK DIRECTIONS; ORAL?
     Route: 048
  10. JUNIOR NUTRITION MULTIVITAMIN [Concomitant]
  11. MIGRAINE MEDICATIONS [Concomitant]
     Active Substance: UNSPECIFIED INGREDIENT
  12. CANDIBACTIN BR [Concomitant]
  13. MAGNESIUM GLYCINATE [Concomitant]
     Active Substance: MAGNESIUM GLYCINATE
  14. PLANTFORCE LIQUID IRON [Concomitant]

REACTIONS (35)
  - Abdominal distension [None]
  - Photophobia [None]
  - Postural orthostatic tachycardia syndrome [None]
  - Hypotension [None]
  - Quality of life decreased [None]
  - Flatulence [None]
  - Nausea [None]
  - Visual impairment [None]
  - Impaired work ability [None]
  - Muscle spasms [None]
  - Palpitations [None]
  - Confusional state [None]
  - Faeces discoloured [None]
  - Chest pain [None]
  - Stomatitis [None]
  - Hypothyroidism [None]
  - Tremor [None]
  - Depression [None]
  - Diarrhoea [None]
  - Dizziness [None]
  - Dyspnoea [None]
  - Dysuria [None]
  - Chest discomfort [None]
  - Anhedonia [None]
  - Rectal spasm [None]
  - Asthenia [None]
  - Migraine [None]
  - Temperature regulation disorder [None]
  - Malaise [None]
  - Anxiety [None]
  - Vertigo [None]
  - Loss of employment [None]
  - Impaired driving ability [None]
  - Gastrointestinal disorder [None]
  - Fatigue [None]

NARRATIVE: CASE EVENT DATE: 20150215
